FAERS Safety Report 7809708-9 (Version None)
Quarter: 2011Q4

REPORT INFORMATION
  Report Type: 
  Country: None (occurrence: None)
  Receive Date: 20111012
  Receipt Date: 20111006
  Transmission Date: 20120403
  Serious: Yes (Hospitalization)
  Sender: FDA-Public Use
  Company Number: JP-GLAXOSMITHKLINE-B0725369A

PATIENT
  Sex: Female
  Weight: 54 kg

DRUGS (4)
  1. TRASTUZUMAB [Concomitant]
     Indication: BREAST CANCER
     Dosage: 324MG PER DAY
     Dates: end: 20100917
  2. XELODA [Suspect]
     Dosage: 1800MG PER DAY
     Route: 048
     Dates: start: 20101001
  3. XELODA [Suspect]
     Indication: PRODUCT USED FOR UNKNOWN INDICATION
     Dosage: 2400MG PER DAY
     Route: 048
     Dates: start: 20100903, end: 20100930
  4. TYKERB [Suspect]
     Indication: BREAST CANCER
     Dosage: 1250MG PER DAY
     Route: 048
     Dates: start: 20100903

REACTIONS (1)
  - HERPES ZOSTER [None]
